FAERS Safety Report 8192945-4 (Version None)
Quarter: 2012Q1

REPORT INFORMATION
  Report Type: 
  Country: None (occurrence: None)
  Receive Date: 20120221
  Receipt Date: 20111108
  Transmission Date: 20120608
  Serious: No
  Sender: FDA-Public Use
  Company Number: 1000025316

PATIENT
  Age: 46 Year
  Sex: Female

DRUGS (6)
  1. VIIBRYD [Suspect]
     Indication: DEPRESSION
     Dosage: 20 MG (20 MG, 1 IN 1 D), ORAL
     Route: 048
     Dates: end: 20111108
  2. PERCOCET (OXYCODONE, ACETAMINOPHEN) (OXYCODONE, ACETAMINOPHEN) [Concomitant]
  3. DEXILANT (DEXLANSOPRAZOLE) (DEXLANSOOPRAZOLE) [Concomitant]
  4. SYNTHROID (LEVOTHYROXINE SODIUM) (LEVOTHYROXINE SODIUM) [Concomitant]
  5. VIIBRYD [Suspect]
     Indication: DEPRESSION
     Dosage: 10 MG (10 MG, 1 IN 1 D), ORAL
     Route: 048
     Dates: start: 20111001
  6. MICARDIS [Concomitant]

REACTIONS (4)
  - HALLUCINATION, VISUAL [None]
  - VISUAL IMPAIRMENT [None]
  - INSOMNIA [None]
  - NAUSEA [None]
